FAERS Safety Report 10441861 (Version 4)
Quarter: 2014Q4

REPORT INFORMATION
  Report Type: Report from Study
  Country: JP (occurrence: JP)
  Receive Date: 20140909
  Receipt Date: 20141229
  Transmission Date: 20150528
  Serious: Yes (Hospitalization, Disabling)
  Sender: FDA-Public Use
  Company Number: JP-SA-2014SA120674

PATIENT
  Age: 70 Year
  Sex: Female
  Weight: 52.2 kg

DRUGS (9)
  1. PLETAL [Concomitant]
     Active Substance: CILOSTAZOL
     Route: 048
     Dates: start: 20130204, end: 20130415
  2. ANPLAG [Concomitant]
     Active Substance: SARPOGRELATE
     Indication: PERIPHERAL ARTERIAL OCCLUSIVE DISEASE
     Route: 048
     Dates: start: 20130415
  3. LANTUS [Concomitant]
     Active Substance: INSULIN GLARGINE
     Dosage: 6 U/DOSE DOSE:6 UNIT(S)
     Route: 058
  4. BASEN [Concomitant]
     Active Substance: VOGLIBOSE
     Route: 048
  5. LYRICA [Concomitant]
     Active Substance: PREGABALIN
     Route: 048
  6. SIGMART [Concomitant]
     Active Substance: NICORANDIL
     Route: 048
  7. PLAVIX [Suspect]
     Active Substance: CLOPIDOGREL BISULFATE
     Indication: PERIPHERAL ARTERIAL OCCLUSIVE DISEASE
     Route: 048
     Dates: start: 20130422
  8. GLUFAST [Concomitant]
     Active Substance: MITIGLINIDE
     Route: 048
  9. TRAZENTA [Concomitant]
     Active Substance: LINAGLIPTIN
     Route: 048

REACTIONS (2)
  - Peripheral arterial occlusive disease [Recovered/Resolved with Sequelae]
  - Cerebral infarction [Recovered/Resolved with Sequelae]

NARRATIVE: CASE EVENT DATE: 20140227
